FAERS Safety Report 15955037 (Version 4)
Quarter: 2022Q3

REPORT INFORMATION
  Report Type: Spontaneous
  Country: US (occurrence: US)
  Receive Date: 20190213
  Receipt Date: 20220826
  Transmission Date: 20221027
  Serious: Yes (Life-Threatening)
  Sender: FDA-Public Use
  Company Number: US-PFIZER INC-2019063157

PATIENT
  Age: 10 Year
  Sex: Female

DRUGS (2)
  1. SOMATROPIN [Suspect]
     Active Substance: SOMATROPIN
     Indication: Growth hormone deficiency
     Dosage: 1.6 MG, DAILY
  2. SOMATROPIN [Suspect]
     Active Substance: SOMATROPIN
     Dosage: INJECTION ONCE A NIGHT AT BEDTIME
     Route: 058

REACTIONS (4)
  - Heart transplant [Unknown]
  - Post transplant lymphoproliferative disorder [Recovered/Resolved with Sequelae]
  - Hair growth abnormal [Unknown]
  - Pigmentation lip [Unknown]

NARRATIVE: CASE EVENT DATE: 20210104
